FAERS Safety Report 8531748-5 (Version None)
Quarter: 2012Q3

REPORT INFORMATION
  Report Type: 
  Country: None (occurrence: None)
  Receive Date: 20120711
  Receipt Date: 20120625
  Transmission Date: 20120928
  Serious: Yes (Death, Hospitalization, Other)
  Sender: FDA-Public Use
  Company Number: 2012MA007894

PATIENT
  Age: 63 Year
  Sex: Male

DRUGS (3)
  1. OXYCODONE HCL [Suspect]
     Indication: PAIN
     Dosage: 20 MG, PO
     Route: 048
  2. FENTANYL-100 [Suspect]
     Indication: PAIN
  3. KADIAN [Suspect]
     Indication: PAIN
     Dosage: 20 MG, QD, IV
     Route: 042

REACTIONS (6)
  - INADEQUATE ANALGESIA [None]
  - RENAL IMPAIRMENT [None]
  - CHEST PAIN [None]
  - CONDITION AGGRAVATED [None]
  - RESPIRATORY DEPRESSION [None]
  - PERINEAL PAIN [None]
